FAERS Safety Report 5625533-1 (Version None)
Quarter: 2008Q1

REPORT INFORMATION
  Report Type: 
  Country: None (occurrence: None)
  Receive Date: 20080211
  Receipt Date: 20080211
  Transmission Date: 20080703
  Serious: Yes (Hospitalization)
  Sender: FDA-Public Use
  Company Number: None

PATIENT
  Sex: Male
  Weight: 107.79 kg

DRUGS (3)
  1. TAXOTERE [Suspect]
     Dosage: 160.5 MG
  2. LEUPROLIDE ACETATE [Suspect]
     Dosage: 45 MG
  3. PREDNISONE TAB [Suspect]
     Dosage: 90 MG

REACTIONS (5)
  - DIARRHOEA [None]
  - FATIGUE [None]
  - FEBRILE NEUTROPENIA [None]
  - PAIN [None]
  - WHITE BLOOD CELL COUNT DECREASED [None]
